FAERS Safety Report 8599679-2 (Version None)
Quarter: 2012Q3

REPORT INFORMATION
  Report Type: 
  Country: None (occurrence: None)
  Receive Date: 20120816
  Receipt Date: 20120808
  Transmission Date: 20120928
  Serious: Yes (Hospitalization, Disabling)
  Sender: FDA-Public Use
  Company Number: DE-BRISTOL-MYERS SQUIBB COMPANY-16859704

PATIENT
  Age: 73 Year
  Sex: Male
  Weight: 91 kg

DRUGS (10)
  1. ERBITUX [Suspect]
     Indication: COLON CANCER METASTATIC
     Dosage: ONCE
     Route: 042
     Dates: start: 20120625, end: 20120625
  2. PREGABALIN [Concomitant]
  3. DOXYCYCLINE HCL [Concomitant]
     Route: 048
  4. DEXAMETHASONE [Concomitant]
     Dosage: 4 MG 0-2MG
     Route: 048
  5. LEUCOVORIN CALCIUM [Concomitant]
     Indication: COLON CANCER METASTATIC
     Dosage: ONCE
     Route: 042
     Dates: start: 20120625, end: 20120625
  6. FLUOROURACIL [Concomitant]
     Indication: COLON CANCER METASTATIC
     Dosage: ONCE 25JUN-25JUN12-1150MG-ONCE
     Route: 042
     Dates: start: 20120625, end: 20120625
  7. FLUPIRTINE MALEATE [Concomitant]
     Dosage: KATADOLON S RETARD 400
     Route: 048
  8. LAXANS [Concomitant]
     Dosage: 1DF= 10 GTTAE IN EVENING
     Route: 048
  9. GLIMEPIRIDE [Concomitant]
     Route: 048
  10. MORPHINE SULFATE [Concomitant]
     Route: 048

REACTIONS (3)
  - AMAUROSIS [None]
  - IRITIS [None]
  - RASH [None]
